FAERS Safety Report 11619446 (Version 8)
Quarter: 2016Q1

REPORT INFORMATION
  Report Type: Spontaneous
  Country: US (occurrence: US)
  Receive Date: 20151012
  Receipt Date: 20160118
  Transmission Date: 20160525
  Serious: Yes (Death, Life-Threatening, Hospitalization, Disabling)
  Sender: FDA-Public Use
  Company Number: US-BAYER-2015-434886

PATIENT
  Age: 68 Year
  Sex: Male
  Weight: 135.15 kg

DRUGS (14)
  1. XOFIGO [Suspect]
     Active Substance: RADIUM RA-223 DICHLORIDE
     Indication: PROSTATE CANCER STAGE IV
     Dosage: 50 KBQ PER KG OF BODY WEIGHT
     Route: 042
     Dates: start: 20150423, end: 20150423
  2. COLACE [Concomitant]
     Active Substance: DOCUSATE SODIUM
  3. MIRALAX [Concomitant]
     Active Substance: POLYETHYLENE GLYCOL 3350
  4. XOFIGO [Suspect]
     Active Substance: RADIUM RA-223 DICHLORIDE
     Indication: PROSTATE CANCER STAGE IV
     Dosage: 50 KBQ PER KG OF BODY WEIGHT
     Route: 042
     Dates: start: 20150328, end: 20150328
  5. XOFIGO [Suspect]
     Active Substance: RADIUM RA-223 DICHLORIDE
     Indication: PROSTATE CANCER STAGE IV
     Dosage: 50 KBQ PER KG OF BODY WEIGHT
     Route: 042
     Dates: start: 20150528, end: 20150528
  6. AMBIEN [Concomitant]
     Active Substance: ZOLPIDEM TARTRATE
  7. LUPRON [Concomitant]
     Active Substance: LEUPROLIDE ACETATE
     Dosage: 22.5MG Q 3 MOS
  8. ZOMETA [Concomitant]
     Active Substance: ZOLEDRONIC ACID
     Dosage: Q 6 WEEKS
  9. ENZALUTAMIDE [Concomitant]
     Active Substance: ENZALUTAMIDE
     Dosage: UNK
     Dates: end: 201505
  10. HYDROCODONE W/ACETAMINOPHEN [Concomitant]
     Active Substance: ACETAMINOPHEN\HYDROCODONE BITARTRATE
  11. TIMOLOL. [Concomitant]
     Active Substance: TIMOLOL
  12. XOFIGO [Suspect]
     Active Substance: RADIUM RA-223 DICHLORIDE
     Indication: PROSTATE CANCER STAGE IV
     Dosage: 50 KBQ PER KG OF BODY WEIGHT
     Route: 042
     Dates: start: 20150129, end: 20150129
  13. XOFIGO [Suspect]
     Active Substance: RADIUM RA-223 DICHLORIDE
     Indication: PROSTATE CANCER STAGE IV
     Dosage: 50 KBQ PER KG OF BODY WEIGHT
     Route: 042
     Dates: start: 20150618, end: 20150618
  14. XOFIGO [Suspect]
     Active Substance: RADIUM RA-223 DICHLORIDE
     Indication: METASTASES TO BONE
     Dosage: 50 KBQ PER KG OF BODY WEIGHT
     Route: 042
     Dates: start: 20150226, end: 20150226

REACTIONS (16)
  - Neutropenia [None]
  - Thrombocytopenia [None]
  - Abdominal distension [Recovered/Resolved]
  - Febrile neutropenia [None]
  - Platelet count decreased [None]
  - Abdominal pain [Recovered/Resolved]
  - Hypovolaemia [None]
  - White blood cell count decreased [None]
  - Asthenia [None]
  - Diarrhoea [Recovered/Resolved]
  - Pancytopenia [None]
  - Performance status decreased [None]
  - Death [Fatal]
  - Acute myeloid leukaemia [None]
  - Myeloblast percentage increased [None]
  - Monocyte morphology abnormal [None]

NARRATIVE: CASE EVENT DATE: 201509
